FAERS Safety Report 19173287 (Version 1)
Quarter: 2021Q2

REPORT INFORMATION
  Report Type: Spontaneous
  Country: US (occurrence: US)
  Receive Date: 20210423
  Receipt Date: 20210423
  Transmission Date: 20210717
  Serious: Yes (Hospitalization)
  Sender: FDA-Public Use
  Company Number: US-ENDO PHARMACEUTICALS INC-2021-002554

PATIENT
  Age: 40 Year
  Sex: Male

DRUGS (1)
  1. AVEED [Suspect]
     Active Substance: TESTOSTERONE UNDECANOATE
     Indication: PRODUCT USED FOR UNKNOWN INDICATION
     Dosage: UNK UNKNOWN, UNKNOWN
     Route: 065

REACTIONS (10)
  - Mitral valve incompetence [Recovered/Resolved]
  - Spinal cord compression [Recovered/Resolved]
  - Aortic valve incompetence [Recovered/Resolved]
  - Intentional product misuse [Unknown]
  - Endocarditis [Recovered/Resolved]
  - Aortic aneurysm [Recovered/Resolved]
  - Intervertebral discitis [Recovered/Resolved]
  - Spinal cord abscess [Recovered/Resolved]
  - Streptococcal sepsis [Recovered/Resolved]
  - Cardiac valve vegetation [Recovered/Resolved]
